FAERS Safety Report 8961141 (Version 1)
Quarter: 2012Q4

REPORT INFORMATION
  Report Type: 
  Country: CN (occurrence: CN)
  Receive Date: 20121213
  Receipt Date: 20121213
  Transmission Date: 20130627
  Serious: Yes (Other)
  Sender: FDA-Public Use
  Company Number: CN-SANOFI-AVENTIS-2012SA089603

PATIENT
  Age: 62 Year
  Sex: Female
  Weight: 72.5 kg

DRUGS (2)
  1. AMARYL [Suspect]
     Indication: DIABETES MELLITUS
     Route: 048
     Dates: start: 20100710, end: 20101123
  2. ACARBOSE [Concomitant]

REACTIONS (6)
  - Bradycardia [Recovering/Resolving]
  - Abdominal distension [Recovering/Resolving]
  - Weight increased [Recovering/Resolving]
  - Hypoglycaemia [Recovering/Resolving]
  - Asthenia [Recovering/Resolving]
  - Cold sweat [Recovering/Resolving]
